FAERS Safety Report 18197577 (Version 2)
Quarter: 2020Q4

REPORT INFORMATION
  Report Type: Spontaneous
  Country: GB (occurrence: GB)
  Receive Date: 20200826
  Receipt Date: 20201027
  Transmission Date: 20210113
  Serious: Yes (Hospitalization, Other)
  Sender: FDA-Public Use
  Company Number: GB-ADVANZ PHARMA-202008008180

PATIENT

DRUGS (14)
  1. DOXORUBICIN HYDROCHLORIDE FOR INJECTION 50MG/ DOXORUBICIN [Suspect]
     Active Substance: DOXORUBICIN HYDROCHLORIDE
     Indication: HODGKIN^S DISEASE
     Dosage: 1 CYCLE
     Route: 041
  2. ONCOVIN [Suspect]
     Active Substance: VINCRISTINE SULFATE
     Indication: HODGKIN^S DISEASE
     Dosage: 1 MG STRENGTH INJECTION, CYCLE
     Route: 065
  3. DACARBAZINE (DACARBAZINE CITRATE) INJECTION/DACARBAZINE [Suspect]
     Active Substance: DACARBAZINE CITRATE
     Indication: HODGKIN^S DISEASE
     Dosage: INJECTION, 1 CYCLE
     Route: 041
  4. ACYCLOVIR. [Concomitant]
     Active Substance: ACYCLOVIR
     Indication: ANTIVIRAL PROPHYLAXIS
     Dosage: UNK
  5. PREDNISOLONE. [Suspect]
     Active Substance: PREDNISOLONE
     Indication: HODGKIN^S DISEASE
     Dosage: CYCLE
  6. BLEO FOR INJ. 5MG (BLEOMYCIN HYDROCHLORIDE) INJECTION/ BLEOMYCIN [Suspect]
     Active Substance: BLEOMYCIN HYDROCHLORIDE
     Dosage: 1 CYCLE
  7. CHLORAMBUCIL [Suspect]
     Active Substance: CHLORAMBUCIL
     Indication: HODGKIN^S DISEASE
     Dosage: CYCLE
  8. PROCARBAZINE (PROCARBAZINE HYDROCHLORIDE) [Suspect]
     Active Substance: PROCARBAZINE HYDROCHLORIDE
     Indication: HODGKIN^S DISEASE
     Dosage: CYCLE
     Route: 065
  9. EXAL FOR INJ. 10MG (VINBLASTINES ULFATE) INJECTION/ VINBLASTINE [Suspect]
     Active Substance: VINBLASTINE SULFATE
     Dosage: 1 CYCLE
  10. COTRIMOXAZOLE [Concomitant]
     Active Substance: SULFAMETHOXAZOLE\TRIMETHOPRIM
     Indication: ANTIVIRAL PROPHYLAXIS
     Route: 065
  11. EXAL FOR INJ. 10MG (VINBLASTINES ULFATE) INJECTION/ VINBLASTINE [Suspect]
     Active Substance: VINBLASTINE SULFATE
     Indication: HODGKIN^S DISEASE
     Dosage: CYCLE
     Route: 040
  12. DOXORUBICIN HYDROCHLORIDE FOR INJECTION 50MG/ DOXORUBICIN [Suspect]
     Active Substance: DOXORUBICIN HYDROCHLORIDE
     Dosage: CYCLE
  13. LASTET INJ. 100MG/5ML (ETOPOSIDE) INJECTION/ ETOPOSIDE [Suspect]
     Active Substance: ETOPOSIDE
     Indication: HODGKIN^S DISEASE
     Dosage: CYCLE
     Route: 065
  14. BLEO FOR INJ. 5MG (BLEOMYCIN HYDROCHLORIDE) INJECTION/ BLEOMYCIN [Suspect]
     Active Substance: BLEOMYCIN HYDROCHLORIDE
     Indication: HODGKIN^S DISEASE
     Dosage: INJECTION, CYCLE
     Route: 041

REACTIONS (5)
  - Herpes zoster meningoencephalitis [Recovered/Resolved]
  - Posterior reversible encephalopathy syndrome [Recovered/Resolved]
  - Febrile neutropenia [Recovered/Resolved]
  - Cytopenia [Recovered/Resolved]
  - Lymphopenia [Recovered/Resolved]
